FAERS Safety Report 14327663 (Version 4)
Quarter: 2019Q3

REPORT INFORMATION
  Report Type: Spontaneous
  Country: NL (occurrence: NL)
  Receive Date: 20171227
  Receipt Date: 20190704
  Transmission Date: 20191004
  Serious: Yes (Life-Threatening, Hospitalization, Other)
  Sender: FDA-Public Use
  Company Number: NL-AUROBINDO-AUR-APL-2017-47169

PATIENT

DRUGS (10)
  1. COLCHICINE 0.5 MG TABLET [Suspect]
     Active Substance: COLCHICINE
     Indication: CRYSTALLURIA
     Dosage: 50 MG, UNK
     Route: 065
     Dates: start: 20170614, end: 20170711
  2. ALLOPURINOL. [Suspect]
     Active Substance: ALLOPURINOL
     Indication: CRYSTALLURIA
  3. ALLOPURINOL. [Suspect]
     Active Substance: ALLOPURINOL
     Indication: BLOOD UREA
     Dosage: 50 MG
     Route: 065
     Dates: start: 20170614, end: 20170711
  4. MELATONINE [Concomitant]
     Active Substance: MELATONIN
     Indication: PRODUCT USED FOR UNKNOWN INDICATION
     Dosage: 0.2 MG, UNK
     Route: 065
  5. LERCANIDIPINE 10 MG, FILM COATED TABLETS [Suspect]
     Active Substance: LERCANIDIPINE
     Indication: PRODUCT USED FOR UNKNOWN INDICATION
     Dosage: 10 MILLIGRAM, ONCE A DAY
     Route: 065
     Dates: start: 20170409
  6. PERINDOPRIL/INDAPAMIDE [Suspect]
     Active Substance: INDAPAMIDE\PERINDOPRIL
     Indication: HYPERTENSION
     Dosage: 1 DOSAGE FORM, ONCE A DAY
     Route: 065
     Dates: start: 20170614
  7. PERINDOPRIL [Suspect]
     Active Substance: PERINDOPRIL
     Indication: PRODUCT USED FOR UNKNOWN INDICATION
     Dosage: 1 DF
     Route: 065
     Dates: start: 20170614
  8. COLCHICINE 0.5 MG TABLET [Suspect]
     Active Substance: COLCHICINE
     Dosage: 1 DOSAGE FORM, ONCE A DAY
     Route: 065
     Dates: start: 20170614, end: 20170711
  9. LERCANIDIPINE 10 MG, FILM COATED TABLETS [Suspect]
     Active Substance: LERCANIDIPINE
     Indication: HYPERTENSION
  10. MELATONINE [Concomitant]
     Active Substance: MELATONIN
     Dosage: 0.2 MG
     Route: 065

REACTIONS (6)
  - Thrombocytopenia [Unknown]
  - Asthenia [Recovered/Resolved]
  - Systemic inflammatory response syndrome [Unknown]
  - Multiple organ dysfunction syndrome [Recovered/Resolved]
  - Leukopenia [Unknown]
  - Respiratory failure [Recovered/Resolved]

NARRATIVE: CASE EVENT DATE: 20170711
